FAERS Safety Report 13549707 (Version 3)
Quarter: 2017Q3

REPORT INFORMATION
  Report Type: Report from Study
  Country: US (occurrence: US)
  Receive Date: 20170516
  Receipt Date: 20170921
  Transmission Date: 20171127
  Serious: Yes (Death)
  Sender: FDA-Public Use
  Company Number: US-ROCHE-1935903

PATIENT
  Sex: Male

DRUGS (4)
  1. ONCOVIN [Concomitant]
     Active Substance: VINCRISTINE SULFATE
  2. RITUXAN [Suspect]
     Active Substance: RITUXIMAB
     Indication: BURKITT^S LYMPHOMA
     Route: 065
  3. NEUPOGEN [Concomitant]
     Active Substance: FILGRASTIM
  4. ALOXI [Concomitant]
     Active Substance: PALONOSETRON HYDROCHLORIDE

REACTIONS (2)
  - Vomiting [Unknown]
  - Nausea [Unknown]
